FAERS Safety Report 8973324 (Version 1)
Quarter: 2012Q4

REPORT INFORMATION
  Report Type: 
  Country: US (occurrence: US)
  Receive Date: 20121218
  Receipt Date: 20121218
  Transmission Date: 20130627
  Serious: Yes (Hospitalization)
  Sender: FDA-Public Use
  Company Number: US-BRISTOL-MYERS SQUIBB COMPANY-16446908

PATIENT
  Age: 27 Year
  Sex: Male
  Weight: 86 kg

DRUGS (2)
  1. ABILIFY [Suspect]
     Indication: SCHIZOPHRENIA, PARANOID TYPE
  2. SUDAFED [Suspect]

REACTIONS (7)
  - Priapism [Unknown]
  - Thinking abnormal [Unknown]
  - Hallucination [Unknown]
  - Musculoskeletal stiffness [Unknown]
  - Tremor [Unknown]
  - Aggression [Unknown]
  - Confusional state [Unknown]
